FAERS Safety Report 4531914-X (Version None)
Quarter: 2004Q4

REPORT INFORMATION
  Report Type: 
  Country: None (occurrence: None)
  Receive Date: 20041216
  Receipt Date: 20041130
  Transmission Date: 20050328
  Serious: Yes (Death, Life-Threatening, Hospitalization)
  Sender: FDA-Public Use
  Company Number: ATO-04-0886

PATIENT
  Age: 75 Year
  Sex: Male
  Weight: 124.7392 kg

DRUGS (7)
  1. TRISENOX [Suspect]
     Indication: MYELODYSPLASTIC SYNDROME
     Dosage: 0.30 MG/KG (0.3 MG/KG, TWICE WEEKLY), IVI
     Route: 042
     Dates: start: 20040607, end: 20040903
  2. CLONIDINE [Concomitant]
  3. HYDROCHLOROTHIAZIDE [Concomitant]
  4. ASPIRIN [Concomitant]
  5. DARVOCET [Concomitant]
  6. PRILOSEC [Concomitant]
  7. MAGNESIUM OXIDE [Concomitant]

REACTIONS (15)
  - ABSCESS ORAL [None]
  - ANAEMIA [None]
  - BACTERIAL CULTURE POSITIVE [None]
  - CULTURE WOUND POSITIVE [None]
  - GROIN ABSCESS [None]
  - HYPOTENSION [None]
  - KLEBSIELLA INFECTION [None]
  - MUCOSAL INFLAMMATION [None]
  - NECROTISING FASCIITIS [None]
  - POST PROCEDURAL COMPLICATION [None]
  - SEPSIS [None]
  - STAPHYLOCOCCAL ABSCESS [None]
  - THERAPY NON-RESPONDER [None]
  - WOUND INFECTION PSEUDOMONAS [None]
  - WOUND INFECTION STAPHYLOCOCCAL [None]
